FAERS Safety Report 12562006 (Version 2)
Quarter: 2016Q3

REPORT INFORMATION
  Report Type: Spontaneous
  Country: US (occurrence: US)
  Receive Date: 20160715
  Receipt Date: 20160727
  Transmission Date: 20161109
  Serious: No
  Sender: FDA-Public Use
  Company Number: US-BRISTOL-MYERS SQUIBB COMPANY-BMS-2016-057441

PATIENT
  Sex: Female

DRUGS (10)
  1. ABILIFY [Suspect]
     Active Substance: ARIPIPRAZOLE
     Dosage: 2 MG, UNK
     Route: 048
  2. KLONOPIN [Concomitant]
     Active Substance: CLONAZEPAM
     Indication: ANXIETY
     Dosage: UNK
     Route: 065
  3. ABILIFY [Suspect]
     Active Substance: ARIPIPRAZOLE
     Indication: DEPRESSION
     Dosage: 3 MG, UNK
     Route: 048
  4. ABILIFY [Suspect]
     Active Substance: ARIPIPRAZOLE
     Dosage: 30 MG, QD
     Route: 048
     Dates: end: 2016
  5. REXULTI [Suspect]
     Active Substance: BREXPIPRAZOLE
     Dosage: 2 MG, UNK
     Route: 048
  6. TOPIRAMATE. [Concomitant]
     Active Substance: TOPIRAMATE
     Indication: PRODUCT USED FOR UNKNOWN INDICATION
     Route: 065
  7. ZOLOFT [Concomitant]
     Active Substance: SERTRALINE HYDROCHLORIDE
     Indication: PRODUCT USED FOR UNKNOWN INDICATION
     Dosage: UNK
     Route: 065
  8. ARIPIPRAZOLE. [Suspect]
     Active Substance: ARIPIPRAZOLE
     Indication: MAJOR DEPRESSION
     Dosage: 20 MG, QD
     Route: 048
     Dates: start: 2016, end: 2016
  9. REXULTI [Suspect]
     Active Substance: BREXPIPRAZOLE
     Indication: MAJOR DEPRESSION
     Dosage: 0.5 MG, QD
     Route: 048
     Dates: start: 201606
  10. CYMBALTA [Concomitant]
     Active Substance: DULOXETINE HYDROCHLORIDE
     Indication: PRODUCT USED FOR UNKNOWN INDICATION
     Dosage: UNK
     Route: 065

REACTIONS (5)
  - Off label use [Unknown]
  - Therapeutic response decreased [Recovered/Resolved]
  - Somnolence [Not Recovered/Not Resolved]
  - Epigastric discomfort [Not Recovered/Not Resolved]
  - Anxiety [Not Recovered/Not Resolved]
